FAERS Safety Report 8624566 (Version 3)
Quarter: 2012Q4

REPORT INFORMATION
  Report Type: 
  Country: IT (occurrence: IT)
  Receive Date: 20120620
  Receipt Date: 20120917
  Transmission Date: 20130627
  Serious: Yes (Other)
  Sender: FDA-Public Use
  Company Number: IT-ROCHE-1079562

PATIENT
  Age: 40 Year
  Sex: Male

DRUGS (3)
  1. XOLAIR [Suspect]
     Indication: ASTHMA
     Dosage: Cylical
     Route: 058
     Dates: start: 20091009
  2. DELTACORTENE [Concomitant]
     Route: 065
  3. INUVAIR [Concomitant]
     Indication: ASTHMA

REACTIONS (1)
  - Vascular endothelial growth factor overexpression [Unknown]
